FAERS Safety Report 9586978 (Version 7)
Quarter: 2013Q4

REPORT INFORMATION
  Report Type: Report from Study
  Country: JP (occurrence: JP)
  Receive Date: 20131003
  Receipt Date: 20131106
  Transmission Date: 20140711
  Serious: Yes (Hospitalization)
  Sender: FDA-Public Use
  Company Number: JP-PFIZER INC-2013274154

PATIENT
  Age: 73 Year
  Sex: Female
  Weight: 49.4 kg

DRUGS (11)
  1. PLACEBO [Suspect]
     Indication: CLEAR CELL RENAL CELL CARCINOMA
     Dosage: 5 MG DAILY
     Route: 048
     Dates: start: 20130625, end: 20130627
  2. PLACEBO [Suspect]
     Dosage: 5 MG DAILY
     Route: 048
     Dates: start: 20130724
  3. PLACEBO [Suspect]
     Dosage: UNK
     Route: 048
     Dates: start: 20130919, end: 20130919
  4. RISPERDAL [Suspect]
     Indication: SCHIZOPHRENIA SIMPLE
     Dosage: 0.1 G, 1X/DAY
     Route: 048
     Dates: start: 20040130
  5. CELECOXIB [Concomitant]
     Indication: BACK PAIN
     Dosage: 100 MG, 2X/DAY
     Route: 048
     Dates: start: 20130528, end: 20130920
  6. TSUMURA YOKUKANSAN EKISU KARYUU [Concomitant]
     Indication: NEUROSIS
     Dosage: 2.5 G, 3X/DAY
     Route: 048
     Dates: start: 20090515
  7. RILMAZAFONE HYDROCHLORIDE HYDRATE [Concomitant]
     Indication: INSOMNIA
     Dosage: 2 MG, 1X/DAY
     Route: 048
     Dates: start: 20040130
  8. ALENDRONATE SODIUM HYDRATE [Concomitant]
     Indication: OSTEOPOROSIS
     Dosage: 35 MG, WEEKLY
     Route: 048
     Dates: start: 20130528
  9. ELDECALCITOL [Concomitant]
     Indication: OSTEOPOROSIS
     Dosage: 0.75 UG, 1X/DAY
     Route: 048
     Dates: start: 20130528, end: 20131001
  10. OLMESARTAN MEDOXOMIL [Concomitant]
     Indication: HYPERTENSION
     Dosage: 20 MG, 1X/DAY
     Route: 048
     Dates: start: 20101224
  11. AZELNIDIPINE [Concomitant]
     Indication: HYPERTENSION
     Dosage: 16 MG, 1X/DAY
     Route: 048
     Dates: start: 20101224

REACTIONS (2)
  - Stress cardiomyopathy [Recovering/Resolving]
  - Rhabdomyolysis [Recovered/Resolved with Sequelae]
